FAERS Safety Report 8520207-1 (Version None)
Quarter: 2012Q3

REPORT INFORMATION
  Report Type: 
  Country: None (occurrence: None)
  Receive Date: 20120719
  Receipt Date: 20120710
  Transmission Date: 20120928
  Serious: Yes (Other)
  Sender: FDA-Public Use
  Company Number: CA-JNJFOC-20120704931

PATIENT
  Sex: Female
  Weight: 95.5 kg

DRUGS (2)
  1. REMICADE [Suspect]
     Route: 042
     Dates: start: 20110518
  2. REMICADE [Suspect]
     Indication: RHEUMATOID ARTHRITIS
     Dosage: 11TH INFUSION
     Route: 042
     Dates: start: 20120710, end: 20120710

REACTIONS (5)
  - TREMOR [None]
  - FLUSHING [None]
  - INFUSION RELATED REACTION [None]
  - DYSPNOEA [None]
  - CHEST DISCOMFORT [None]
